FAERS Safety Report 10030437 (Version 1)
Quarter: 2014Q1

REPORT INFORMATION
  Report Type: Spontaneous
  Country: US (occurrence: US)
  Receive Date: 20140323
  Receipt Date: 20140323
  Transmission Date: 20141002
  Serious: No
  Sender: FDA-Public Use
  Company Number: US-ALLERGAN-1402398US

PATIENT
  Sex: Female

DRUGS (5)
  1. LATISSE 0.03% [Suspect]
     Indication: GROWTH OF EYELASHES
     Dosage: UNK
     Dates: start: 2011
  2. CALCIUM SUPPLEMENTS [Concomitant]
  3. TYLENOL                            /00020001/ [Concomitant]
     Indication: HEADACHE
  4. EYE MAKE UP [Concomitant]
  5. EYE CREAM [Concomitant]

REACTIONS (4)
  - Inappropriate schedule of drug administration [Unknown]
  - Drug ineffective [Unknown]
  - Trichorrhexis [Unknown]
  - Madarosis [Unknown]
